FAERS Safety Report 9867984 (Version 2)
Quarter: 2016Q1

REPORT INFORMATION
  Report Type: Report from Study
  Country: RU (occurrence: RU)
  Receive Date: 20140204
  Receipt Date: 20160310
  Transmission Date: 20160526
  Serious: Yes (Other)
  Sender: FDA-Public Use
  Company Number: RU-SANOFI-AVENTIS-2013SA004727

PATIENT
  Age: 18 Year
  Sex: Female
  Weight: 61 kg

DRUGS (1)
  1. TERIFLUNOMIDE [Suspect]
     Active Substance: TERIFLUNOMIDE
     Indication: MULTIPLE SCLEROSIS
     Route: 048
     Dates: start: 20120808, end: 20130118

REACTIONS (2)
  - Amylase increased [Recovered/Resolved]
  - Lipase increased [Recovered/Resolved]

NARRATIVE: CASE EVENT DATE: 20130115
